FAERS Safety Report 14287808 (Version 1)
Quarter: 2017Q4

REPORT INFORMATION
  Report Type: Spontaneous
  Country: US (occurrence: US)
  Receive Date: 20171214
  Receipt Date: 20171214
  Transmission Date: 20180321
  Serious: No
  Sender: FDA-Public Use
  Company Number: US-PERRIGO-17US026822

PATIENT
  Age: 56 Year
  Sex: Male
  Weight: 73.47 kg

DRUGS (1)
  1. TESTOSTERONE. [Suspect]
     Active Substance: TESTOSTERONE
     Indication: BLOOD TESTOSTERONE DECREASED
     Dosage: 60 MG, QD
     Route: 061
     Dates: start: 201709, end: 201709

REACTIONS (2)
  - Application site discomfort [Recovered/Resolved]
  - Application site irritation [Recovered/Resolved]

NARRATIVE: CASE EVENT DATE: 201709
